FAERS Safety Report 4286728-5 (Version None)
Quarter: 2004Q1

REPORT INFORMATION
  Report Type: 
  Country: None (occurrence: None)
  Receive Date: 20040204
  Receipt Date: 20040126
  Transmission Date: 20041129
  Serious: Yes (Other)
  Sender: FDA-Public Use
  Company Number: 200313857

PATIENT
  Age: 25 Year
  Sex: Male
  Weight: 66.2252 kg

DRUGS (10)
  1. BOTOX [Suspect]
     Indication: HYPERTONIA
     Dosage: 95 UNITS PRN IM
     Route: 030
     Dates: start: 20031119, end: 20031119
  2. PROZAC [Concomitant]
  3. PHENOL [Concomitant]
  4. DOCUSATE SODIUM [Concomitant]
  5. PARLODEL [Concomitant]
  6. MULTI-VITAMINS [Concomitant]
  7. TRAZODONE HCL [Concomitant]
  8. ACETAMINOPHEN [Concomitant]
  9. IBUPROFEN [Concomitant]
  10. KEPPRA [Concomitant]

REACTIONS (7)
  - CONVULSION [None]
  - DYSPHAGIA [None]
  - HYPOTONIA [None]
  - INTRACRANIAL PRESSURE INCREASED [None]
  - MUSCLE TWITCHING [None]
  - SIMPLE PARTIAL SEIZURES [None]
  - TONGUE DISORDER [None]
